FAERS Safety Report 20305194 (Version 1)
Quarter: 2022Q1

REPORT INFORMATION
  Report Type: Spontaneous
  Country: IE (occurrence: IE)
  Receive Date: 20220106
  Receipt Date: 20220106
  Transmission Date: 20220424
  Serious: Yes (Life-Threatening, Other)
  Sender: FDA-Public Use
  Company Number: None

PATIENT
  Age: 65 Year
  Sex: Female

DRUGS (9)
  1. PIPERACILLIN SODIUM\TAZOBACTAM SODIUM [Suspect]
     Active Substance: PIPERACILLIN SODIUM\TAZOBACTAM SODIUM
     Indication: Lung disorder
     Dosage: UNK
  2. PIPERACILLIN SODIUM\TAZOBACTAM SODIUM [Suspect]
     Active Substance: PIPERACILLIN SODIUM\TAZOBACTAM SODIUM
     Dosage: 4.5 GRAM, ONE DOSE
     Route: 042
     Dates: start: 20211214
  3. ZOLPIDEM TARTRATE [Concomitant]
     Active Substance: ZOLPIDEM TARTRATE
     Dosage: 10 MILLIGRAM, QD, AT NIGHT
  4. SERLAN [Concomitant]
     Indication: Depression
     Dosage: 100 MILLIGRAM, QD, ONCE DAILY
  5. XARELTO [Concomitant]
     Active Substance: RIVAROXABAN
     Indication: Atrial fibrillation
     Dosage: 20 MILLIGRAM, QD, ONCE DAILY
  6. VALDOXAN [Concomitant]
     Active Substance: AGOMELATINE
     Dosage: 50 MILLIGRAM, QD, DAILY
  7. NALOXONE HYDROCHLORIDE\OXYCODONE HYDROCHLORIDE [Concomitant]
     Active Substance: NALOXONE HYDROCHLORIDE\OXYCODONE HYDROCHLORIDE
     Indication: Pain
     Dosage: UNK UNK, BID, 10MG/5MG TWICE DAILY
  8. VERAP [Concomitant]
     Dosage: 240 MILLIGRAM, QD, 240MG ONCE DAILY
  9. LYRICA [Concomitant]
     Active Substance: PREGABALIN
     Dosage: 100MG MORNING 300MG NOCTE

REACTIONS (5)
  - Flushing [Recovered/Resolved]
  - Respiratory distress [Recovered/Resolved]
  - Dyspnoea [Recovered/Resolved]
  - Tachycardia [Recovered/Resolved]
  - Throat tightness [Recovered/Resolved]

NARRATIVE: CASE EVENT DATE: 20211214
